FAERS Safety Report 7469332-7 (Version None)
Quarter: 2011Q2

REPORT INFORMATION
  Report Type: 
  Country: None (occurrence: None)
  Receive Date: 20110429
  Receipt Date: 20110413
  Transmission Date: 20111010
  Serious: Yes (Death, Hospitalization, Other)
  Sender: FDA-Public Use
  Company Number: 2011MA003846

PATIENT
  Age: 61 Year
  Sex: Male

DRUGS (1)
  1. FEVERALL [Suspect]

REACTIONS (1)
  - MULTI-ORGAN FAILURE [None]
